FAERS Safety Report 5374347-9 (Version None)
Quarter: 2007Q2

REPORT INFORMATION
  Report Type: 
  Country: None (occurrence: None)
  Receive Date: 20070629
  Receipt Date: 20070625
  Transmission Date: 20071010
  Serious: Yes (Disabling)
  Sender: FDA-Public Use
  Company Number: PHRM2007FR01468

PATIENT
  Sex: Female
  Weight: 56 kg

DRUGS (3)
  1. AVASTIN [Concomitant]
     Indication: BREAST CANCER METASTATIC
     Dosage: 550 MG
     Dates: start: 20070420, end: 20070601
  2. ZOMETA [Suspect]
     Indication: METASTASES TO BONE
     Dosage: 4 MG, QMO
     Route: 042
     Dates: start: 20060604, end: 20070518
  3. TAXOL [Suspect]
     Indication: BREAST CANCER METASTATIC
     Dosage: 125 MG PER WEEK
     Dates: start: 20070420, end: 20070601

REACTIONS (7)
  - DENTAL CARE [None]
  - GINGIVAL OPERATION [None]
  - IMPAIRED HEALING [None]
  - OSTEOLYSIS [None]
  - OSTEONECROSIS [None]
  - PAIN IN JAW [None]
  - WOUND DEBRIDEMENT [None]
